FAERS Safety Report 16899187 (Version 1)
Quarter: 2019Q4

REPORT INFORMATION
  Report Type: Spontaneous
  Country: US (occurrence: US)
  Receive Date: 20191009
  Receipt Date: 20191009
  Transmission Date: 20200122
  Serious: No
  Sender: FDA-Public Use
  Company Number: US-PFIZER INC-2019432725

PATIENT
  Sex: Female
  Weight: 59 kg

DRUGS (22)
  1. IBUPROFEN. [Suspect]
     Active Substance: IBUPROFEN
     Dosage: UNK
  2. PHENYTOIN. [Suspect]
     Active Substance: PHENYTOIN
     Dosage: UNK
  3. AZITHROMYCIN ANHYDROUS. [Suspect]
     Active Substance: AZITHROMYCIN ANHYDROUS
     Dosage: UNK
  4. DILANTIN [Suspect]
     Active Substance: PHENYTOIN
     Dosage: UNK
  5. CARBATROL [Suspect]
     Active Substance: CARBAMAZEPINE
     Dosage: UNK
  6. FOSPHENYTOIN SODIUM. [Suspect]
     Active Substance: FOSPHENYTOIN SODIUM
     Dosage: UNK
  7. PHENOBARBITAL. [Suspect]
     Active Substance: PHENOBARBITAL
     Dosage: UNK
  8. ISOVUE [Suspect]
     Active Substance: IOPAMIDOL
     Dosage: UNK
  9. RIFADIN [Suspect]
     Active Substance: RIFAMPIN
     Dosage: UNK
  10. ALLOPURINOL. [Suspect]
     Active Substance: ALLOPURINOL
     Dosage: UNK
  11. CILOSTAZOL. [Suspect]
     Active Substance: CILOSTAZOL
     Dosage: UNK
  12. LUNESTA [Suspect]
     Active Substance: ESZOPICLONE
     Dosage: UNK
  13. PHENYTEK [Suspect]
     Active Substance: PHENYTOIN SODIUM
     Dosage: UNK
  14. CEREBYX [Suspect]
     Active Substance: FOSPHENYTOIN SODIUM
     Dosage: UNK
  15. RIFAMPIN. [Suspect]
     Active Substance: RIFAMPIN
     Dosage: UNK
  16. TETRACYCLINE HCL [Suspect]
     Active Substance: TETRACYCLINE HYDROCHLORIDE
     Dosage: UNK
  17. CARBAMAZEPINE. [Suspect]
     Active Substance: CARBAMAZEPINE
     Dosage: UNK
  18. AMLODIPINE BESILATE [Suspect]
     Active Substance: AMLODIPINE BESYLATE
     Dosage: UNK
  19. FLUCONAZOLE. [Suspect]
     Active Substance: FLUCONAZOLE
     Dosage: UNK
  20. ACYCLOVIR. [Suspect]
     Active Substance: ACYCLOVIR
     Dosage: UNK
  21. TEGRETOL [Suspect]
     Active Substance: CARBAMAZEPINE
     Dosage: UNK
  22. PROPAFENONE. [Suspect]
     Active Substance: PROPAFENONE
     Dosage: UNK

REACTIONS (1)
  - Drug hypersensitivity [Unknown]
